FAERS Safety Report 8168428-4 (Version None)
Quarter: 2012Q1

REPORT INFORMATION
  Report Type: 
  Country: None (occurrence: None)
  Receive Date: 20120227
  Receipt Date: 20120216
  Transmission Date: 20120608
  Serious: Yes (Hospitalization, Other)
  Sender: FDA-Public Use
  Company Number: FR-JNJFOC-20120210068

PATIENT
  Age: 62 Year
  Sex: Male

DRUGS (13)
  1. METHOTREXATE SODIUM [Suspect]
     Indication: PRODUCT USED FOR UNKNOWN INDICATION
     Route: 058
     Dates: start: 20100620
  2. PREDNISOLONE [Suspect]
     Indication: PRODUCT USED FOR UNKNOWN INDICATION
     Route: 048
     Dates: start: 20030101
  3. PANTOPRAZOLE [Concomitant]
  4. FOLIC ACID [Concomitant]
  5. CALCIUM WITH VITAMIN D [Concomitant]
  6. CRESTOR [Concomitant]
  7. SHARK CARTILAGE [Concomitant]
  8. PLAVIX [Concomitant]
  9. PERMIXON [Concomitant]
  10. ASPIRIN [Concomitant]
  11. OMIX [Concomitant]
  12. REMICADE [Suspect]
     Indication: COLITIS ULCERATIVE
     Route: 042
     Dates: start: 20091214
  13. ACEBUTOLOL [Concomitant]

REACTIONS (1)
  - CYTOMEGALOVIRUS COLITIS [None]
